FAERS Safety Report 4513017-3 (Version None)
Quarter: 2004Q4

REPORT INFORMATION
  Report Type: 
  Country: None (occurrence: None)
  Receive Date: 20041124
  Receipt Date: 20041112
  Transmission Date: 20050328
  Serious: Yes (Other)
  Sender: FDA-Public Use
  Company Number: 200415501BCC

PATIENT
  Sex: Male

DRUGS (3)
  1. ALEVE [Suspect]
     Indication: ARTHRITIS
     Dosage: ORAL
     Route: 048
  2. ALEVE [Suspect]
     Indication: BACK PAIN
     Dosage: ORAL
     Route: 048
  3. ADVIL [Concomitant]

REACTIONS (3)
  - DYSPEPSIA [None]
  - GASTROOESOPHAGEAL REFLUX DISEASE [None]
  - MEDICATION ERROR [None]
